FAERS Safety Report 24185571 (Version 1)
Quarter: 2024Q3

REPORT INFORMATION
  Report Type: Spontaneous
  Country: GB (occurrence: GB)
  Receive Date: 20240807
  Receipt Date: 20240807
  Transmission Date: 20241017
  Serious: Yes (Other)
  Sender: SUNOVION
  Company Number: GB-CNX THERAPEUTICS-2024CNX000450

PATIENT

DRUGS (1)
  1. LATUDA [Suspect]
     Active Substance: LURASIDONE HYDROCHLORIDE
     Indication: Schizophrenia
     Dosage: UNK
     Route: 065

REACTIONS (6)
  - Eye swelling [Unknown]
  - Swelling face [Unknown]
  - Pruritus [Unknown]
  - Eye pruritus [Unknown]
  - Erythema [Unknown]
  - Pruritus [Unknown]
